FAERS Safety Report 9764507 (Version 3)
Quarter: 2016Q2

REPORT INFORMATION
  Report Type: Report from Study
  Country: US (occurrence: US)
  Receive Date: 20131217
  Receipt Date: 20160523
  Transmission Date: 20160815
  Serious: Yes (Death, Other)
  Sender: FDA-Public Use
  Company Number: US-ROCHE-1309373

PATIENT
  Sex: Male
  Weight: 65.1 kg

DRUGS (7)
  1. XELODA [Suspect]
     Active Substance: CAPECITABINE
     Indication: COLON CANCER
     Route: 065
     Dates: end: 2008
  2. 5-FU [Concomitant]
     Active Substance: FLUOROURACIL
  3. XELODA [Suspect]
     Active Substance: CAPECITABINE
     Route: 048
     Dates: start: 201206, end: 201209
  4. FOLINIC ACID [Concomitant]
     Active Substance: LEUCOVORIN
  5. AVASTIN [Suspect]
     Active Substance: BEVACIZUMAB
     Route: 042
     Dates: start: 20120605, end: 20120829
  6. OXALIPLATIN. [Concomitant]
     Active Substance: OXALIPLATIN
     Route: 065
     Dates: start: 201109, end: 201201
  7. AVASTIN [Suspect]
     Active Substance: BEVACIZUMAB
     Indication: COLON CANCER
     Dosage: 331MG
     Route: 042
     Dates: start: 20120605, end: 20120829

REACTIONS (8)
  - Disease progression [Fatal]
  - Neuropathy peripheral [Unknown]
  - Haematochezia [Unknown]
  - Rectal haemorrhage [Unknown]
  - Change of bowel habit [Unknown]
  - Epistaxis [Unknown]
  - Abdominal pain [Unknown]
  - Cytopenia [Unknown]
